FAERS Safety Report 5268615-9 (Version None)
Quarter: 2007Q1

REPORT INFORMATION
  Report Type: 
  Country: None (occurrence: None)
  Receive Date: 20070315
  Receipt Date: 20070315
  Transmission Date: 20070707
  Serious: Yes (Life-Threatening, Hospitalization)
  Sender: FDA-Public Use
  Company Number: None

PATIENT
  Age: 81 Year
  Sex: Male
  Weight: 92.1 kg

DRUGS (8)
  1. TERAZOSIN HCL [Suspect]
     Indication: BENIGN PROSTATIC HYPERPLASIA
     Dosage: 4MG P.O. AT BEDTIME
     Route: 048
     Dates: start: 20050401, end: 20070201
  2. ATENOLOL [Concomitant]
  3. SIMVASTATIN [Concomitant]
  4. CITALOPRAM HYDROBROMIDE [Concomitant]
  5. FINASTERIDE [Concomitant]
  6. OMEPRAZOLE [Concomitant]
  7. COUMADIN [Concomitant]
  8. TRAZODONE HCL [Concomitant]

REACTIONS (2)
  - HYPOTENSION [None]
  - SYNCOPE [None]
